FAERS Safety Report 19740178 (Version 4)
Quarter: 2022Q1

REPORT INFORMATION
  Report Type: Report from Study
  Country: US (occurrence: US)
  Receive Date: 20210823
  Receipt Date: 20220103
  Transmission Date: 20220423
  Serious: Yes (Hospitalization)
  Sender: FDA-Public Use
  Company Number: US-NOVARTISTESTPH-NVSC2021US188447

PATIENT
  Age: 55 Year
  Sex: Female
  Weight: 64.853 kg

DRUGS (5)
  1. TREPROSTINIL [Suspect]
     Active Substance: TREPROSTINIL
     Indication: Pulmonary arterial hypertension
     Dosage: 166 NG/KG/MIN, CONT
     Route: 042
     Dates: start: 20210715
  2. TREPROSTINIL [Suspect]
     Active Substance: TREPROSTINIL
     Dosage: 166 NG/KG/MIN, CONT
     Route: 042
  3. ADCIRCA [Concomitant]
     Active Substance: TADALAFIL
     Indication: Pulmonary arterial hypertension
     Dosage: UNK
     Route: 065
  4. ELIQUIS [Concomitant]
     Active Substance: APIXABAN
     Indication: Product used for unknown indication
     Dosage: UNK
     Route: 065
  5. OPSUMIT [Concomitant]
     Active Substance: MACITENTAN
     Indication: Product used for unknown indication
     Dosage: UNK
     Route: 065

REACTIONS (3)
  - Infection [Unknown]
  - Weight increased [Unknown]
  - Fluid retention [Unknown]

NARRATIVE: CASE EVENT DATE: 20211220
